FAERS Safety Report 14523059 (Version 2)
Quarter: 2018Q1

REPORT INFORMATION
  Report Type: Spontaneous
  Country: US (occurrence: US)
  Receive Date: 20180212
  Receipt Date: 20180309
  Transmission Date: 20180509
  Serious: Yes (Death, Other)
  Sender: FDA-Public Use
  Company Number: US-VIFOR (INTERNATIONAL) INC.-VIT-2018-01422

PATIENT
  Age: 90 Year
  Sex: Female

DRUGS (19)
  1. PROCRIT [Concomitant]
     Active Substance: ERYTHROPOIETIN
  2. ULORIC [Concomitant]
     Active Substance: FEBUXOSTAT
  3. VELTASSA [Suspect]
     Active Substance: PATIROMER
     Indication: HYPERKALAEMIA
     Route: 048
     Dates: start: 20180113
  4. ASPIRIN 81 [Concomitant]
     Active Substance: ASPIRIN
  5. BISACODYL. [Concomitant]
     Active Substance: BISACODYL
  6. FERROUS FUMARATE [Concomitant]
     Active Substance: FERROUS FUMARATE
  7. ASCORBIC ACID~~VACCINIUM MACROCARPON FRUIT [Concomitant]
  8. ZANTAC 75 [Concomitant]
     Active Substance: RANITIDINE HYDROCHLORIDE
  9. MELATONIN [Concomitant]
     Active Substance: MELATONIN
  10. KEPPRA [Concomitant]
     Active Substance: LEVETIRACETAM
  11. VACCINIUM MACROCARPON [Concomitant]
     Active Substance: CRANBERRY
  12. HYDRALAZINE HYDROCHLORIDE. [Concomitant]
     Active Substance: HYDRALAZINE HYDROCHLORIDE
  13. HYDROXYCARBAMIDE [Concomitant]
     Active Substance: HYDROXYUREA
  14. PLANTAGO OVATA [Concomitant]
     Active Substance: HERBALS\PLANTAGO OVATA LEAF
  15. BENAZEPRIL HYDROCHLORIDE~~AMLODIPINE BESILATE [Concomitant]
  16. CELEXA [Concomitant]
     Active Substance: CITALOPRAM HYDROBROMIDE
  17. VICODIN [Concomitant]
     Active Substance: ACETAMINOPHEN\HYDROCODONE BITARTRATE
  18. SALBUTAMOL SULFATE [Concomitant]
     Active Substance: ALBUTEROL SULFATE
  19. PARACETAMOL [Concomitant]
     Active Substance: ACETAMINOPHEN

REACTIONS (2)
  - Death [Fatal]
  - Pneumonia [Unknown]

NARRATIVE: CASE EVENT DATE: 201802
